FAERS Safety Report 6947986-9 (Version None)
Quarter: 2010Q3

REPORT INFORMATION
  Report Type: 
  Country: None (occurrence: None)
  Receive Date: 20100825
  Receipt Date: 20100809
  Transmission Date: 20110219
  Serious: Yes (Hospitalization)
  Sender: FDA-Public Use
  Company Number: DSA_43669_2010

PATIENT
  Sex: Female

DRUGS (17)
  1. LORAZEPAM [Suspect]
     Indication: ANXIETY
     Dosage: DF
  2. XL281 (BMS 908662 - INVESTIGATIONAL) (INVESTIGATIONAL DRUG) [Suspect]
     Indication: MALIGNANT MELANOMA
     Dosage: 150 MG, ORAL
     Route: 048
     Dates: start: 20100429, end: 20100615
  3. ALPRAZOLAM [Suspect]
     Indication: ANXIETY
     Dosage: 1 DF, AS NECESSARY, ORAL
     Route: 048
     Dates: start: 20100429, end: 20100615
  4. OXYCODONE [Concomitant]
  5. MIRALAX [Concomitant]
  6. MS CONTIN [Concomitant]
  7. ZOFRAN [Concomitant]
  8. SENNA-S [Concomitant]
  9. DECADRON [Concomitant]
  10. ACETAMINOPHEN [Concomitant]
  11. COMPAZINE [Concomitant]
  12. SENOKOT [Concomitant]
  13. KLONOPIN [Concomitant]
  14. MEGACE [Concomitant]
  15. AMBIEN [Concomitant]
  16. LEVAQUIN [Concomitant]
  17. POLYETHYLENE GLYCOL [Concomitant]

REACTIONS (9)
  - ASTHENIA [None]
  - CONFUSIONAL STATE [None]
  - DECREASED APPETITE [None]
  - FATIGUE [None]
  - GAIT DISTURBANCE [None]
  - MEMORY IMPAIRMENT [None]
  - MENTAL STATUS CHANGES [None]
  - METASTASES TO CENTRAL NERVOUS SYSTEM [None]
  - WEIGHT DECREASED [None]
